FAERS Safety Report 16627387 (Version 2)
Quarter: 2019Q3

REPORT INFORMATION
  Report Type: Report from Study
  Country: US (occurrence: US)
  Receive Date: 20190724
  Receipt Date: 20190916
  Transmission Date: 20191004
  Serious: Yes (Hospitalization)
  Sender: FDA-Public Use
  Company Number: US-ACTELION-A-US2019-190395

PATIENT
  Sex: Female
  Weight: 131.97 kg

DRUGS (5)
  1. UPTRAVI [Suspect]
     Active Substance: SELEXIPAG
     Indication: PULMONARY ARTERIAL HYPERTENSION
     Dosage: 200 MCG, BID
     Route: 048
  2. UPTRAVI [Suspect]
     Active Substance: SELEXIPAG
     Dosage: 400 MCG, BID
     Route: 048
  3. UPTRAVI [Suspect]
     Active Substance: SELEXIPAG
     Dosage: 600 MCG, BID
     Route: 048
  4. TADALAFIL. [Concomitant]
     Active Substance: TADALAFIL
  5. LETAIRIS [Concomitant]
     Active Substance: AMBRISENTAN

REACTIONS (10)
  - Neuralgia [Unknown]
  - Pain in jaw [Unknown]
  - Skin laceration [Unknown]
  - Gastrooesophageal reflux disease [Unknown]
  - Leg amputation [Unknown]
  - Dyspnoea [Unknown]
  - Wound complication [Unknown]
  - Drug ineffective [Unknown]
  - Fall [Unknown]
  - Headache [Unknown]
